FAERS Safety Report 20102661 (Version 1)
Quarter: 2021Q4

REPORT INFORMATION
  Report Type: Spontaneous
  Country: PL (occurrence: PL)
  Receive Date: 20211123
  Receipt Date: 20211123
  Transmission Date: 20220303
  Serious: Yes (Hospitalization, Other)
  Sender: FDA-Public Use
  Company Number: PL-NOVARTISPH-NVSC2021PL232051

PATIENT
  Age: 62 Year
  Sex: Male
  Weight: 78 kg

DRUGS (5)
  1. ASPIRIN [Suspect]
     Active Substance: ASPIRIN
     Dosage: UNK
     Route: 048
  2. BISOPROLOL FUMARATE [Suspect]
     Active Substance: BISOPROLOL FUMARATE
     Indication: Hypertension
     Dosage: 10 MG
     Route: 048
     Dates: start: 2008
  3. BISOPROLOL FUMARATE [Suspect]
     Active Substance: BISOPROLOL FUMARATE
     Dosage: 10 MG
     Route: 048
  4. RAMIPRIL [Suspect]
     Active Substance: RAMIPRIL
     Indication: Hypertension
     Dosage: 10 MG
     Route: 048
     Dates: start: 2008
  5. RAMIPRIL [Suspect]
     Active Substance: RAMIPRIL
     Route: 048
     Dates: start: 2008

REACTIONS (3)
  - Ischaemic stroke [Unknown]
  - Pain in extremity [Unknown]
  - Neuralgia [Unknown]

NARRATIVE: CASE EVENT DATE: 20210423
